FAERS Safety Report 6847439-2 (Version None)
Quarter: 2010Q3

REPORT INFORMATION
  Report Type: 
  Country: None (occurrence: None)
  Receive Date: 20100716
  Receipt Date: 20100708
  Transmission Date: 20110219
  Serious: Yes (Other)
  Sender: FDA-Public Use
  Company Number: BR-PFIZER INC-2010085188

PATIENT
  Sex: Female

DRUGS (1)
  1. LIPITOR [Suspect]
     Indication: BLOOD CHOLESTEROL INCREASED
     Dosage: 20 MG, 1X/DAY (HALF 40MG TABLET ONCE DAILY)
     Route: 048
     Dates: start: 20100101

REACTIONS (4)
  - DRY MOUTH [None]
  - MUSCLE ATROPHY [None]
  - POLYURIA [None]
  - WEIGHT DECREASED [None]
